FAERS Safety Report 10196712 (Version 2)
Quarter: 2014Q2

REPORT INFORMATION
  Report Type: Spontaneous
  Country: DE (occurrence: DE)
  Receive Date: 20140527
  Receipt Date: 20140527
  Transmission Date: 20141212
  Serious: Yes (Hospitalization)
  Sender: FDA-Public Use
  Company Number: DE-OTSUKA-EU-2013-10321

PATIENT
  Age: 37 Year
  Sex: Male

DRUGS (7)
  1. PLETAL [Suspect]
     Indication: THROMBOANGIITIS OBLITERANS
     Dosage: 100 MG MILLIGRAM(S), BID
     Route: 065
     Dates: start: 200705
  2. PLETAL [Suspect]
     Indication: PERIPHERAL ARTERIAL OCCLUSIVE DISEASE
     Dosage: 50 MG MILLIGRAM(S), BID
     Route: 065
  3. CARVEDILOL [Concomitant]
     Indication: HEART RATE INCREASED
     Dosage: UNK UNK, UNKNOWN
     Route: 065
  4. ACETYLSALICYLIC ACID [Concomitant]
     Dosage: UNK, UNKNOWN
     Route: 065
  5. LOSARTAN [Concomitant]
     Dosage: UNK, UNKNOWN
     Route: 065
  6. FELODIPINE [Concomitant]
     Dosage: UNK, UNKNOWN
     Route: 065
  7. ALLERGENS NOS [Concomitant]
     Indication: ASTHMA
     Dosage: UNK, UNKNOWN
     Route: 065

REACTIONS (7)
  - Tachycardia [Unknown]
  - Peripheral arterial occlusive disease [Unknown]
  - Thromboangiitis obliterans [Unknown]
  - Intervertebral disc protrusion [Unknown]
  - Condition aggravated [Unknown]
  - Off label use [Unknown]
  - Prescribed underdose [Unknown]
